FAERS Safety Report 8958574 (Version 1)
Quarter: 2012Q4

REPORT INFORMATION
  Report Type: Spontaneous
  Country: US (occurrence: None)
  Receive Date: 20121127
  Receipt Date: 20121127
  Transmission Date: 20130627
  Serious: Yes (Hospitalization)
  Sender: FDA-Public Use
  Company Number: None

PATIENT
  Age: 67 Year
  Sex: Male
  Weight: 72.58 kg

DRUGS (4)
  1. PEGASYS [Suspect]
     Indication: HEPATITIS C
     Dosage: 180MCG UNDER THE SKIN ONCE A WEEK
     Route: 058
     Dates: start: 20120801, end: 20121109
  2. PROCRIT [Concomitant]
  3. RIBASPHERE [Concomitant]
  4. INCIVEK [Concomitant]

REACTIONS (1)
  - Encephalopathy [None]
